FAERS Safety Report 20659293 (Version 3)
Quarter: 2022Q2

REPORT INFORMATION
  Report Type: Spontaneous
  Country: US (occurrence: US)
  Receive Date: 20220331
  Receipt Date: 20220617
  Transmission Date: 20220721
  Serious: Yes (Death, Other)
  Sender: FDA-Public Use
  Company Number: US-TEVA-2022-US-2022606

PATIENT
  Age: 55 Year
  Sex: Male
  Weight: 98 kg

DRUGS (25)
  1. AMLODIPINE\HYDROCHLOROTHIAZIDE\VALSARTAN [Suspect]
     Active Substance: AMLODIPINE\HYDROCHLOROTHIAZIDE\VALSARTAN
     Indication: Hypertension
     Dosage: DOSAGE: 10-320-25 MG
     Route: 065
     Dates: start: 20170314, end: 20170413
  2. AMLODIPINE\HYDROCHLOROTHIAZIDE\VALSARTAN [Suspect]
     Active Substance: AMLODIPINE\HYDROCHLOROTHIAZIDE\VALSARTAN
     Indication: Hypertension
     Dosage: DOSAGE: 10-320-25 MG
     Route: 065
     Dates: start: 20170210, end: 20170311
  3. AMLODIPINE\HYDROCHLOROTHIAZIDE\VALSARTAN [Suspect]
     Active Substance: AMLODIPINE\HYDROCHLOROTHIAZIDE\VALSARTAN
     Indication: Hypertension
     Dosage: DOSAGE: 10-320-25 MG
     Route: 065
     Dates: start: 20170410, end: 20170510
  4. HYDROCHLOROTHIAZIDE\VALSARTAN [Suspect]
     Active Substance: HYDROCHLOROTHIAZIDE\VALSARTAN
     Indication: Hypertension
     Dosage: DOSAGE 330 MG
     Route: 065
     Dates: start: 20160729, end: 20161027
  5. HYDROCHLOROTHIAZIDE\VALSARTAN [Suspect]
     Active Substance: HYDROCHLOROTHIAZIDE\VALSARTAN
     Dosage: DOSAGE 330 MG
     Route: 065
     Dates: start: 20170112, end: 20170211
  6. HYDROCHLOROTHIAZIDE\VALSARTAN [Suspect]
     Active Substance: HYDROCHLOROTHIAZIDE\VALSARTAN
     Indication: Hypertension
     Dosage: DOSAGE 330  MG
     Route: 065
     Dates: start: 20161111, end: 20170101
  7. CARAFATE [Concomitant]
     Active Substance: SUCRALFATE
     Dosage: 4 GRAM DAILY; 1 GRAM, QID (4 TIMES A DAY)
     Route: 048
  8. LYRICA [Concomitant]
     Active Substance: PREGABALIN
     Indication: Neuropathy peripheral
     Dosage: 40 MILLIGRAM DAILY;
     Route: 048
     Dates: start: 20140812
  9. VIAGRA [Concomitant]
     Active Substance: SILDENAFIL CITRATE
     Indication: Erectile dysfunction
     Dosage: AS DIRECTED
     Dates: start: 20150107
  10. TRAZODONE HYDROCHLORIDE [Concomitant]
     Active Substance: TRAZODONE HYDROCHLORIDE
     Indication: Pain
     Dosage: 50 MILLIGRAM DAILY; 1-2,QHS- OKAY TO CRUSH FOR FEEDING TUBE/OR LIQUID DOSES
     Dates: start: 20150806
  11. Hydroxyizine [Concomitant]
     Indication: Blood pressure abnormal
     Dosage: AS NEEDED
     Route: 048
     Dates: start: 20150806
  12. CYMBALTA [Concomitant]
     Active Substance: DULOXETINE HYDROCHLORIDE
     Indication: Depression
     Dosage: 60 MILLIGRAM DAILY; DAILY DOSE: 60 MG
     Route: 048
     Dates: start: 20150806
  13. ULTRAM [Concomitant]
     Active Substance: TRAMADOL HYDROCHLORIDE
     Indication: Product used for unknown indication
     Dosage: 200 MILLIGRAM DAILY; 1 QID, PRN
     Dates: start: 20150107
  14. FLUTICASONE PROPIONATE [Concomitant]
     Active Substance: FLUTICASONE PROPIONATE
     Indication: Hypersensitivity
     Dosage: 2 SPARYS IN EACH NOSTRIL EVERY DAY
     Route: 045
     Dates: start: 20150806
  15. AMARYL [Concomitant]
     Active Substance: GLIMEPIRIDE
     Indication: Product used for unknown indication
     Dosage: 8 MILLIGRAM DAILY;
     Dates: start: 20150327
  16. METFORMIN HYDROCHLORIDE [Concomitant]
     Active Substance: METFORMIN HYDROCHLORIDE
     Indication: Type 2 diabetes mellitus
     Dosage: 1500 MILLIGRAM DAILY; ONE TABLET BY MOUTH THREE TIMES DAILY
     Route: 048
     Dates: start: 20141027
  17. TRADJENTA [Concomitant]
     Active Substance: LINAGLIPTIN
     Indication: Type 2 diabetes mellitus
     Dosage: 5 MILLIGRAM DAILY; 5 MG 1 TABLET MOUTH DAILY
     Route: 048
  18. CLONIDINE HYDROCHLORIDE [Concomitant]
     Active Substance: CLONIDINE HYDROCHLORIDE
     Indication: Hypertension
     Dosage: .3 MILLIGRAM DAILY;
     Route: 048
  19. COREG [Concomitant]
     Active Substance: CARVEDILOL
     Indication: Product use in unapproved indication
     Dosage: 50 MILLIGRAM DAILY;
     Route: 048
  20. PROTONIX [Concomitant]
     Active Substance: PANTOPRAZOLE SODIUM
     Indication: Product used for unknown indication
     Dosage: 40 MILLIGRAM DAILY;
     Dates: start: 20190212
  21. ZANTAC [Concomitant]
     Active Substance: RANITIDINE HYDROCHLORIDE
     Indication: Gastric pH decreased
     Dates: start: 2015, end: 20200720
  22. VitaminB12 [Concomitant]
     Indication: Product used for unknown indication
     Dates: start: 1990, end: 202002
  23. VITAMIN C [Concomitant]
     Active Substance: ASCORBIC ACID
     Indication: Product used for unknown indication
     Dates: start: 1990, end: 202002
  24. HYDROCHLOROTHIAZIDE\TRIAMTERENE [Concomitant]
     Active Substance: HYDROCHLOROTHIAZIDE\TRIAMTERENE
     Indication: Blood pressure abnormal
     Dosage: 50 MILLIGRAM DAILY;
     Route: 048
  25. Senokot -S [Concomitant]
     Indication: Product used for unknown indication
     Dosage: 50 MG 3 TABLETS BY MOUTH AT NIGHT
     Route: 048
     Dates: start: 20180214

REACTIONS (3)
  - Oesophageal adenocarcinoma stage IV [Fatal]
  - Metastases to lymph nodes [Unknown]
  - Metastases to bone [Unknown]
